FAERS Safety Report 25707002 (Version 1)
Quarter: 2025Q3

REPORT INFORMATION
  Report Type: Spontaneous
  Country: EU (occurrence: EU)
  Receive Date: 20250820
  Receipt Date: 20250820
  Transmission Date: 20251021
  Serious: Yes (Hospitalization)
  Sender: PFIZER
  Company Number: None

PATIENT
  Age: 70 Year
  Sex: Male
  Weight: 78 kg

DRUGS (5)
  1. LINEZOLID [Suspect]
     Active Substance: LINEZOLID
     Indication: Hepatic cyst
     Dosage: 1200 MG, DAILY
     Route: 048
     Dates: start: 20250616, end: 20250620
  2. LINEZOLID [Suspect]
     Active Substance: LINEZOLID
     Indication: Enterococcal infection
  3. AMIODARONE [Suspect]
     Active Substance: AMIODARONE
     Indication: Arrhythmia
     Dosage: 200 MG, DAILY
     Route: 048
     Dates: start: 20250618, end: 20250707
  4. FUROSEMIDE [Suspect]
     Active Substance: FUROSEMIDE
     Indication: Oedema
     Dosage: 200 MG, DAILY
     Route: 042
     Dates: start: 20250621, end: 20250705
  5. CEFOTAXIME [Suspect]
     Active Substance: CEFOTAXIME SODIUM
     Indication: Citrobacter infection
     Dosage: 4 G, DAILY
     Route: 042
     Dates: start: 20250620, end: 20250707

REACTIONS (3)
  - Thrombocytopenia [Not Recovered/Not Resolved]
  - Condition aggravated [Not Recovered/Not Resolved]
  - Off label use [Unknown]

NARRATIVE: CASE EVENT DATE: 20250616
